FAERS Safety Report 6781272-5 (Version None)
Quarter: 2010Q2

REPORT INFORMATION
  Report Type: 
  Country: None (occurrence: None)
  Receive Date: 20100621
  Receipt Date: 20100608
  Transmission Date: 20101027
  Serious: Yes (Hospitalization, Other)
  Sender: FDA-Public Use
  Company Number: PHHY2010AU11970

PATIENT
  Sex: Female

DRUGS (4)
  1. CLOZARIL [Suspect]
     Indication: SCHIZOPHRENIA
     Dosage: 675 MG
     Route: 048
     Dates: start: 20070101
  2. CLOZARIL [Suspect]
     Dosage: 700 MG
     Route: 048
     Dates: start: 20090801
  3. CLOZARIL [Suspect]
     Dosage: 600 MG
     Route: 048
  4. ESCITALOPRAM [Concomitant]
     Dosage: 10 MG, QD
     Route: 048

REACTIONS (6)
  - ANTIPSYCHOTIC DRUG LEVEL INCREASED [None]
  - ELECTROCARDIOGRAM CHANGE [None]
  - ELECTROCARDIOGRAM QT PROLONGED [None]
  - ELECTROCARDIOGRAM ST-T CHANGE [None]
  - LEUKOCYTOSIS [None]
  - PALPITATIONS [None]
